FAERS Safety Report 4636598-8 (Version None)
Quarter: 2005Q2

REPORT INFORMATION
  Report Type: 
  Country: None (occurrence: None)
  Receive Date: 20050414
  Receipt Date: 20050317
  Transmission Date: 20051028
  Serious: Yes (Death)
  Sender: FDA-Public Use
  Company Number: 2005-UK-00470UK

PATIENT
  Age: 78 Year
  Sex: Female

DRUGS (12)
  1. TIOTROPIUM (00015/0190/A) (TIOTROPIUM BROMIDE) (KAI) [Suspect]
     Indication: CHRONIC OBSTRUCTIVE PULMONARY DISEASE
     Dosage: 18 MCG (18 MCG, OD) IH
     Route: 055
  2. SALBUTAMOL (SALBUTAMOL) (NR) [Concomitant]
  3. AQUEOUS CREAM (AQUEOUS CREAM) (CR) [Concomitant]
  4. LACTULOSE SOLUTION (LACTULOSE) (LO) [Concomitant]
  5. SENNA TABLETS (SENNA ALEXANDRINA) (TA) [Concomitant]
  6. LANSOPRAZOLE (KA) [Concomitant]
  7. SALBUTAMOL (SALBUTAMOL) (NR) [Concomitant]
  8. SERETIDE (SERETIDE MITE) (NR) [Concomitant]
  9. AEROCHAMBER SPACER DEVICE (NR) [Concomitant]
  10. QUININE SULPHATE (QUININE SULFATE) (TA) [Concomitant]
  11. DEXAMETHASONE (DEXAMETHASONE) (TA) [Concomitant]
  12. PARACETAMOL (PARACETAMOL) (TA) [Concomitant]

REACTIONS (1)
  - NON-HODGKIN'S LYMPHOMA [None]
